FAERS Safety Report 23860988 (Version 2)
Quarter: 2025Q2

REPORT INFORMATION
  Report Type: Spontaneous
  Country: US (occurrence: US)
  Receive Date: 20240516
  Receipt Date: 20250515
  Transmission Date: 20250717
  Serious: No
  Sender: UCB
  Company Number: US-UCBSA-2024003713

PATIENT
  Sex: Female

DRUGS (1)
  1. CIMZIA [Suspect]
     Active Substance: CERTOLIZUMAB PEGOL
     Indication: Psoriasis
     Dosage: 400 MILLIGRAM, EV 4 WEEKS
     Route: 058
     Dates: start: 202304

REACTIONS (3)
  - Psoriasis [Unknown]
  - Therapy interrupted [Unknown]
  - Therapeutic product effect incomplete [Unknown]

NARRATIVE: CASE EVENT DATE: 20230101
